FAERS Safety Report 16552709 (Version 1)
Quarter: 2019Q3

REPORT INFORMATION
  Report Type: Other
  Country: CA (occurrence: CA)
  Receive Date: 20190710
  Receipt Date: 20190710
  Transmission Date: 20191004
  Serious: Yes (Death, Life-Threatening, Hospitalization, Other)
  Sender: FDA-Public Use
  Company Number: CA-APOTEX-2019AP017742

PATIENT
  Age: 87 Year
  Sex: Female
  Weight: 38 kg

DRUGS (6)
  1. SANDOSTATIN [Suspect]
     Active Substance: OCTREOTIDE ACETATE
     Dosage: 10 MG, Q.M.T.
     Route: 030
  2. SANDOSTATIN [Suspect]
     Active Substance: OCTREOTIDE ACETATE
     Dosage: 20 MG, Q.M.T.
     Route: 030
  3. LETROZOLE. [Suspect]
     Active Substance: LETROZOLE
     Indication: PRODUCT USED FOR UNKNOWN INDICATION
     Dosage: UNK
     Route: 065
  4. SANDOSTATIN [Suspect]
     Active Substance: OCTREOTIDE ACETATE
     Dosage: 10 MG, Q.M.T.
     Route: 030
  5. SANDOSTATIN [Suspect]
     Active Substance: OCTREOTIDE ACETATE
     Indication: CARCINOID SYNDROME
     Dosage: UNK
     Route: 030
  6. SANDOSTATIN [Suspect]
     Active Substance: OCTREOTIDE ACETATE
     Dosage: 10 MG, Q.M.T.
     Route: 030

REACTIONS (39)
  - Blood pressure diastolic decreased [Fatal]
  - Death [Fatal]
  - Dyspnoea [Fatal]
  - Injection site swelling [Fatal]
  - Malignant neoplasm progression [Fatal]
  - Nausea [Fatal]
  - General physical health deterioration [Fatal]
  - Stress [Fatal]
  - Vomiting [Fatal]
  - Asthenia [Fatal]
  - Chest injury [Fatal]
  - Confusional state [Fatal]
  - Depressed mood [Fatal]
  - Diarrhoea [Fatal]
  - Mucous stools [Fatal]
  - Rhinalgia [Fatal]
  - Apparent death [Fatal]
  - Gait disturbance [Fatal]
  - Hip fracture [Fatal]
  - Muscle atrophy [Fatal]
  - Obstructive airways disorder [Fatal]
  - Blood pressure increased [Fatal]
  - Blood pressure systolic increased [Fatal]
  - Body temperature decreased [Fatal]
  - Disorientation [Fatal]
  - Dizziness [Fatal]
  - Head injury [Fatal]
  - Nasal injury [Fatal]
  - Fall [Fatal]
  - Feeling abnormal [Fatal]
  - Memory impairment [Fatal]
  - Tenderness [Fatal]
  - Injection site erythema [Fatal]
  - Loss of consciousness [Fatal]
  - Blood pressure decreased [Fatal]
  - Breast cancer [Fatal]
  - Eating disorder [Fatal]
  - Injection site pain [Fatal]
  - Weight decreased [Fatal]
